FAERS Safety Report 16367473 (Version 1)
Quarter: 2019Q2

REPORT INFORMATION
  Report Type: Spontaneous
  Country: US (occurrence: US)
  Receive Date: 20190529
  Receipt Date: 20190529
  Transmission Date: 20190711
  Serious: No
  Sender: FDA-Public Use
  Company Number: US-OTSUKA-2018_027980

PATIENT
  Sex: Female

DRUGS (3)
  1. SAMSCA [Suspect]
     Active Substance: TOLVAPTAN
     Indication: HYPONATRAEMIA
     Dosage: UNK, (ONE HALF TABLET BY MOUTH EVERY THREE DAYS)
     Route: 048
     Dates: start: 20180529
  2. SAMSCA [Suspect]
     Active Substance: TOLVAPTAN
     Dosage: 1 DF, QW (ONE TABLET WEEKLY)
     Route: 048
     Dates: end: 20180605
  3. SAMSCA [Suspect]
     Active Substance: TOLVAPTAN
     Dosage: 15 MG, QD
     Route: 048

REACTIONS (2)
  - Inappropriate schedule of product administration [Unknown]
  - Wrong technique in product usage process [Unknown]
